FAERS Safety Report 7888804-4 (Version None)
Quarter: 2011Q4

REPORT INFORMATION
  Report Type: 
  Country: None (occurrence: None)
  Receive Date: 20111103
  Receipt Date: 20111031
  Transmission Date: 20120403
  Serious: Yes (Other)
  Sender: FDA-Public Use
  Company Number: US-PFIZER INC-2011264786

PATIENT
  Sex: Female
  Weight: 53.5 kg

DRUGS (3)
  1. PRISTIQ [Suspect]
     Indication: ANXIETY
     Dosage: 100 MG, DAILY
     Route: 048
     Dates: start: 20110101, end: 20111028
  2. VALIUM [Concomitant]
     Indication: ANXIETY
     Dosage: 5 MG, 2X/DAY
     Route: 048
  3. PRISTIQ [Suspect]
     Indication: MAJOR DEPRESSION
     Dosage: 50 MG, DAILY
     Route: 048
     Dates: start: 20090501, end: 20110101

REACTIONS (6)
  - MENTAL IMPAIRMENT [None]
  - HEADACHE [None]
  - DISTURBANCE IN ATTENTION [None]
  - DIARRHOEA [None]
  - ANXIETY [None]
  - DEPRESSION [None]
